FAERS Safety Report 7961354-2 (Version None)
Quarter: 2011Q4

REPORT INFORMATION
  Report Type: 
  Country: None (occurrence: None)
  Receive Date: 20111121
  Receipt Date: 20110928
  Transmission Date: 20120403
  Serious: No
  Sender: FDA-Public Use
  Company Number: 1000024355

PATIENT
  Sex: Male

DRUGS (2)
  1. VIIBRYD [Suspect]
     Dosage: 10;20  MG (10 MG, 1 IN 1 D, ORAL
     Route: 048
     Dates: start: 20110901
  2. VIIBRYD [Suspect]
     Dosage: 10;20  MG (10 MG, 1 IN 1 D, ORAL
     Route: 048
     Dates: start: 20110901, end: 20110901

REACTIONS (1)
  - FEELING ABNORMAL [None]
